FAERS Safety Report 9357079 (Version 2)
Quarter: 2013Q3

REPORT INFORMATION
  Report Type: Spontaneous
  Country: US (occurrence: US)
  Receive Date: 20130620
  Receipt Date: 20130710
  Transmission Date: 20140515
  Serious: Yes (Other)
  Sender: FDA-Public Use
  Company Number: US-BIOGENIDEC-2013BI052603

PATIENT
  Age: 48 Year
  Sex: Male

DRUGS (1)
  1. AVONEX [Suspect]
     Indication: MULTIPLE SCLEROSIS
     Route: 030
     Dates: start: 19990401

REACTIONS (6)
  - Respiratory disorder [Recovered/Resolved]
  - Constipation [Recovered/Resolved]
  - Speech disorder [Not Recovered/Not Resolved]
  - Visual impairment [Recovered/Resolved]
  - Disturbance in attention [Recovered/Resolved]
  - Diarrhoea [Recovered/Resolved]
